FAERS Safety Report 5443078-9 (Version None)
Quarter: 2007Q3

REPORT INFORMATION
  Report Type: 
  Country: None (occurrence: None)
  Receive Date: 20070830
  Receipt Date: 20070823
  Transmission Date: 20080115
  Serious: Yes (Hospitalization, Other)
  Sender: FDA-Public Use
  Company Number: 2007SP017194

PATIENT
  Age: 44 Year
  Sex: Male

DRUGS (2)
  1. PEG-INTRON [Suspect]
     Indication: HEPATITIS C
     Dates: start: 20070719, end: 20070817
  2. RIBAVIRIN [Suspect]
     Indication: HEPATITIS C
     Dosage: PO
     Route: 048
     Dates: start: 20070719, end: 20070817

REACTIONS (8)
  - AGGRESSION [None]
  - DRUG HYPERSENSITIVITY [None]
  - DYSGEUSIA [None]
  - DYSPNOEA [None]
  - FACIAL PAIN [None]
  - INSOMNIA [None]
  - RED BLOOD CELL COUNT DECREASED [None]
  - VIOLENCE-RELATED SYMPTOM [None]
